FAERS Safety Report 14158777 (Version 1)
Quarter: 2017Q4

REPORT INFORMATION
  Report Type: Spontaneous
  Country: US (occurrence: US)
  Receive Date: 20171106
  Receipt Date: 20171106
  Transmission Date: 20180321
  Serious: Yes (Other)
  Sender: FDA-Public Use
  Company Number: US-AUROBINDO-AUR-APL-2017-43209

PATIENT
  Age: 43 Year
  Sex: Female

DRUGS (4)
  1. IXAZOMIB [Interacting]
     Active Substance: IXAZOMIB
     Indication: NEUROPATHY PERIPHERAL
  2. BORTEZOMIB [Interacting]
     Active Substance: BORTEZOMIB
     Indication: NEUROPATHY PERIPHERAL
  3. LENALIDOMIDE [Interacting]
     Active Substance: LENALIDOMIDE
     Indication: NEUROPATHY PERIPHERAL
  4. DEXAMETHASONE. [Suspect]
     Active Substance: DEXAMETHASONE
     Indication: NEUROPATHY PERIPHERAL

REACTIONS (3)
  - Drug interaction [Unknown]
  - Myocarditis [Recovered/Resolved]
  - Cardiotoxicity [Recovered/Resolved]
